FAERS Safety Report 16864043 (Version 1)
Quarter: 2019Q3

REPORT INFORMATION
  Report Type: Report from Study
  Country: CA (occurrence: CA)
  Receive Date: 20190927
  Receipt Date: 20190927
  Transmission Date: 20191005
  Serious: Yes (Death, Other)
  Sender: FDA-Public Use
  Company Number: CA-TEVA-2019-CA-1113557

PATIENT
  Age: 72 Year
  Sex: Female
  Weight: 47 kg

DRUGS (9)
  1. METOPROLOL. [Suspect]
     Active Substance: METOPROLOL
     Indication: PRODUCT USED FOR UNKNOWN INDICATION
     Route: 065
  2. SUTENT [Concomitant]
     Active Substance: SUNITINIB MALATE
     Dosage: 12.5 MILLIGRAM DAILY;
     Route: 065
  3. AFINITOR [Suspect]
     Active Substance: EVEROLIMUS
     Indication: PANCREATIC NEUROENDOCRINE TUMOUR
     Route: 048
  4. SANDOSTATIN [Suspect]
     Active Substance: OCTREOTIDE ACETATE
     Indication: NEUROENDOCRINE TUMOUR
     Route: 030
  5. CALCIUM [Concomitant]
     Active Substance: CALCIUM
     Route: 065
  6. SPIRONOLACTONE. [Concomitant]
     Active Substance: SPIRONOLACTONE
     Route: 065
  7. SUTENT [Concomitant]
     Active Substance: SUNITINIB MALATE
     Dosage: 25 MILLIGRAM DAILY;
     Route: 065
  8. LASIX [Concomitant]
     Active Substance: FUROSEMIDE
     Route: 065
  9. SUNITINIB MALATE. [Suspect]
     Active Substance: SUNITINIB MALATE
     Indication: PRODUCT USED FOR UNKNOWN INDICATION
     Route: 065

REACTIONS (43)
  - Abdominal pain [Fatal]
  - Blood pressure systolic increased [Fatal]
  - Depression [Fatal]
  - Inflammation [Fatal]
  - Palpitations [Fatal]
  - Scar [Fatal]
  - Diarrhoea [Fatal]
  - Pain [Fatal]
  - Body temperature decreased [Fatal]
  - Bursitis [Fatal]
  - Epistaxis [Fatal]
  - Fall [Fatal]
  - Malaise [Fatal]
  - Pruritus [Fatal]
  - Vomiting [Fatal]
  - Death [Fatal]
  - Drug intolerance [Fatal]
  - Heart rate decreased [Fatal]
  - Weight decreased [Fatal]
  - Back pain [Fatal]
  - Dermatitis [Fatal]
  - Eating disorder [Fatal]
  - Hepatic neoplasm [Fatal]
  - Pain in extremity [Fatal]
  - Rash [Fatal]
  - Second primary malignancy [Fatal]
  - Spinal stenosis [Fatal]
  - Hypotension [Fatal]
  - Lethargy [Fatal]
  - Myalgia [Fatal]
  - Neoplasm progression [Fatal]
  - Alopecia [Fatal]
  - Asthenia [Fatal]
  - Fatigue [Fatal]
  - Inappropriate schedule of product administration [Fatal]
  - Joint swelling [Fatal]
  - Sciatica [Fatal]
  - Gastrointestinal pain [Fatal]
  - Musculoskeletal pain [Fatal]
  - Nausea [Fatal]
  - Pain of skin [Fatal]
  - Peripheral swelling [Fatal]
  - Toxicity to various agents [Fatal]
